FAERS Safety Report 6194409-6 (Version None)
Quarter: 2009Q2

REPORT INFORMATION
  Report Type: 
  Country: None (occurrence: None)
  Receive Date: 20090519
  Receipt Date: 20090514
  Transmission Date: 20091009
  Serious: Yes (Hospitalization)
  Sender: FDA-Public Use
  Company Number: KR-BAYER-200920543GPV

PATIENT
  Age: 59 Year
  Sex: Female

DRUGS (5)
  1. CIPROFLOXACIN [Suspect]
     Indication: RENAL ABSCESS
     Route: 048
     Dates: start: 20070101
  2. CIPROFLOXACIN [Suspect]
     Route: 048
     Dates: start: 20070101, end: 20070101
  3. CIPROFLOXACIN [Suspect]
     Route: 042
     Dates: start: 20070113, end: 20070101
  4. METRONIDAZOLE [Suspect]
     Indication: RENAL ABSCESS
     Route: 042
     Dates: start: 20070113, end: 20070101
  5. METRONIDAZOLE [Suspect]
     Dates: start: 20070101, end: 20070101

REACTIONS (5)
  - AGITATION [None]
  - CHOREA [None]
  - CONFUSIONAL STATE [None]
  - DYSKINESIA [None]
  - MENTAL STATUS CHANGES [None]
